FAERS Safety Report 9338738 (Version 1)
Quarter: 2013Q2

REPORT INFORMATION
  Report Type: Spontaneous
  Country: IT (occurrence: IT)
  Receive Date: 20130610
  Receipt Date: 20130610
  Transmission Date: 20140414
  Serious: Yes (Hospitalization)
  Sender: FDA-Public Use
  Company Number: IT-PFIZER INC-2013172493

PATIENT
  Age: 25 Year
  Sex: Female

DRUGS (2)
  1. IBUPROFEN [Suspect]
     Dosage: 600 MG, 10 TIMES A DAY
     Route: 048
     Dates: start: 20130511, end: 20130511
  2. LANSOPRAZOLE [Suspect]
     Dosage: 90 MG, UNK
     Route: 048
     Dates: start: 20130511, end: 20130511

REACTIONS (2)
  - Toxicity to various agents [Recovering/Resolving]
  - Accidental overdose [Unknown]
